FAERS Safety Report 20703418 (Version 1)
Quarter: 2022Q2

REPORT INFORMATION
  Report Type: Spontaneous
  Country: US (occurrence: US)
  Receive Date: 20220413
  Receipt Date: 20220413
  Transmission Date: 20220721
  Serious: No
  Sender: FDA-Public Use
  Company Number: US-LUPIN PHARMACEUTICALS INC.-2022-05122

PATIENT
  Age: 17 Year
  Sex: Male

DRUGS (19)
  1. LEVETIRACETAM [Suspect]
     Active Substance: LEVETIRACETAM
     Indication: Breath holding
     Dosage: UNK
     Route: 065
  2. ESCITALOPRAM [Suspect]
     Active Substance: ESCITALOPRAM OXALATE
     Indication: Anxiety
     Dosage: UNK
     Route: 065
  3. ESCITALOPRAM [Suspect]
     Active Substance: ESCITALOPRAM OXALATE
     Indication: Breath holding
  4. ARIPIPRAZOLE [Suspect]
     Active Substance: ARIPIPRAZOLE
     Indication: Breath holding
     Dosage: UNK
     Route: 065
  5. QUETIAPINE FUMARATE [Suspect]
     Active Substance: QUETIAPINE FUMARATE
     Indication: Breath holding
     Dosage: UNK
     Route: 065
  6. FLUOXETINE [Suspect]
     Active Substance: FLUOXETINE HYDROCHLORIDE
     Indication: Anxiety
     Dosage: 2.5 MILLIGRAM, BID
     Route: 065
  7. CLOBAZAM [Suspect]
     Active Substance: CLOBAZAM
     Indication: Breath holding
     Dosage: UNK
     Route: 065
  8. GABAPENTIN [Suspect]
     Active Substance: GABAPENTIN
     Indication: Breath holding
     Dosage: UNK
     Route: 065
  9. VALPROIC ACID [Suspect]
     Active Substance: VALPROIC ACID
     Indication: Breath holding
     Dosage: UNK
     Route: 065
  10. PRIMIDONE [Suspect]
     Active Substance: PRIMIDONE
     Indication: Breath holding
     Dosage: UNK
     Route: 065
  11. CAFFEINE [Suspect]
     Active Substance: CAFFEINE
     Indication: Breath holding
     Dosage: UNK
     Route: 065
  12. AMANTADINE [Suspect]
     Active Substance: AMANTADINE
     Indication: Breath holding
     Dosage: UNK
     Route: 065
  13. FERROUS SULFATE [Suspect]
     Active Substance: FERROUS SULFATE
     Indication: Breath holding
     Dosage: UNK
     Route: 065
  14. DESIPRAMINE [Suspect]
     Active Substance: DESIPRAMINE
     Indication: Breath holding
     Dosage: UNK
     Route: 065
  15. RISPERIDONE [Concomitant]
     Active Substance: RISPERIDONE
     Indication: Apnoea
     Dosage: UNK
     Route: 065
  16. ACETAZOLAMIDE [Concomitant]
     Active Substance: ACETAZOLAMIDE
     Indication: Breath holding
     Dosage: UNK
     Route: 065
  17. GLYCOPYRROLATE [Concomitant]
     Active Substance: GLYCOPYRROLATE
     Indication: Apnoea
     Dosage: UNK
     Route: 065
  18. DOCONEXENT\ICOSAPENT\PHOSPHATIDYL SERINE [Concomitant]
     Active Substance: DOCONEXENT\ICOSAPENT\PHOSPHATIDYL SERINE
     Indication: Behaviour disorder
     Dosage: UNK
     Route: 065
  19. DOCONEXENT\ICOSAPENT\PHOSPHATIDYL SERINE [Concomitant]
     Active Substance: DOCONEXENT\ICOSAPENT\PHOSPHATIDYL SERINE
     Indication: Apnoea

REACTIONS (5)
  - Agitation [Unknown]
  - Eye swelling [Unknown]
  - Drug hypersensitivity [Unknown]
  - Psychomotor hyperactivity [Unknown]
  - Drug ineffective [Unknown]
